FAERS Safety Report 9171197 (Version 4)
Quarter: 2013Q4

REPORT INFORMATION
  Report Type: Report from Study
  Country: US (occurrence: US)
  Receive Date: 20130319
  Receipt Date: 20131010
  Transmission Date: 20140711
  Serious: Yes (Hospitalization, Other)
  Sender: FDA-Public Use
  Company Number: PHEH2013US006139

PATIENT
  Sex: Male
  Weight: 105 kg

DRUGS (8)
  1. GLEEVEC [Suspect]
     Indication: SOFT TISSUE CANCER
     Dosage: 400 MG, QD
     Route: 048
     Dates: start: 20110627
  2. GLEEVEC [Suspect]
     Indication: GASTROINTESTINAL STROMAL TUMOUR
     Dosage: 400 MG, QD
     Route: 048
     Dates: start: 201209
  3. LYRICA [Concomitant]
     Dosage: UNK UKN, UNK
  4. AMBIEN [Concomitant]
     Indication: INSOMNIA
     Dosage: 10 MG
     Route: 048
  5. DILAUDID [Concomitant]
     Dosage: UNK UKN, UNK
     Route: 048
  6. DOXEPIN [Concomitant]
     Dosage: 10 MG
     Route: 048
  7. LOSARTAN [Concomitant]
     Indication: HYPERLIPIDAEMIA
     Dosage: 100 MG, DAILY
     Route: 048
  8. FLUROZIN [Concomitant]
     Dosage: 0.4 MG, DAILY
     Route: 048

REACTIONS (3)
  - Cerebrovascular accident [Recovered/Resolved]
  - Muscle spasms [Not Recovered/Not Resolved]
  - Dry skin [Unknown]
